FAERS Safety Report 7780733-X (Version None)
Quarter: 2011Q3

REPORT INFORMATION
  Report Type: 
  Country: None (occurrence: None)
  Receive Date: 20110927
  Receipt Date: 20110623
  Transmission Date: 20111222
  Serious: Yes (Other)
  Sender: FDA-Public Use
  Company Number: US-BRISTOL-MYERS SQUIBB COMPANY-15830474

PATIENT
  Age: 49 Year
  Sex: Male
  Weight: 102 kg

DRUGS (1)
  1. AVAPRO [Suspect]
     Indication: BLOOD PRESSURE

REACTIONS (7)
  - RENAL CYST [None]
  - HYPERHIDROSIS [None]
  - DEPRESSION [None]
  - FATIGUE [None]
  - HYPONATRAEMIA [None]
  - MUSCLE SPASMS [None]
  - URINARY TRACT INFECTION [None]
